FAERS Safety Report 10136622 (Version 1)
Quarter: 2014Q2

REPORT INFORMATION
  Report Type: Spontaneous
  Country: US (occurrence: None)
  Receive Date: 20140425
  Receipt Date: 20140425
  Transmission Date: 20141212
  Serious: Yes (Hospitalization)
  Sender: FDA-Public Use
  Company Number: IPC201404-000178

PATIENT
  Age: 78 Year
  Sex: Male

DRUGS (7)
  1. HYDROCHLOROTHIAZIDE [Suspect]
     Indication: HYPERTENSION
  2. AMLODIPINE BESILATE [Suspect]
     Indication: HYPERTENSION
  3. SPIRONOLACTONE [Suspect]
     Indication: HYPERTENSION
  4. ALISKIREN [Suspect]
     Indication: HYPERTENSION
  5. CARVEDILOL [Suspect]
     Indication: HYPERTENSION
  6. ROSUVASTATIN [Suspect]
  7. BENAZEPRIL [Suspect]
     Indication: HYPERTENSION

REACTIONS (8)
  - Renal failure acute [None]
  - Drug ineffective [None]
  - Bradycardia [None]
  - Blood pressure decreased [None]
  - Defect conduction intraventricular [None]
  - Electrocardiogram T wave peaked [None]
  - Hyperkalaemia [None]
  - Dialysis [None]
